FAERS Safety Report 7484804-7 (Version None)
Quarter: 2011Q2

REPORT INFORMATION
  Report Type: 
  Country: None (occurrence: None)
  Receive Date: 20110517
  Receipt Date: 20110511
  Transmission Date: 20111010
  Serious: Yes (Other)
  Sender: FDA-Public Use
  Company Number: B0717931A

PATIENT
  Sex: Female

DRUGS (2)
  1. NICOTINE [Suspect]
     Route: 002
  2. UNKNOWN MEDICATION [Concomitant]

REACTIONS (2)
  - ANAPHYLACTIC REACTION [None]
  - ANAPHYLACTIC SHOCK [None]
